FAERS Safety Report 11568242 (Version 3)
Quarter: 2015Q4

REPORT INFORMATION
  Report Type: Report from Study
  Country: US (occurrence: US)
  Receive Date: 20150929
  Receipt Date: 20151028
  Transmission Date: 20160304
  Serious: Yes (Other)
  Sender: FDA-Public Use
  Company Number: US-AMGEN-USASP2015099339

PATIENT
  Age: 58 Year
  Sex: Female

DRUGS (1)
  1. ENBREL [Suspect]
     Active Substance: ETANERCEPT
     Indication: RHEUMATOID ARTHRITIS
     Dosage: 50 MG, QWK
     Route: 065
     Dates: start: 2000, end: 201509

REACTIONS (10)
  - Abdominal pain upper [Unknown]
  - Perforated ulcer [Unknown]
  - Dyspnoea [Unknown]
  - Pain in extremity [Unknown]
  - Malaise [Unknown]
  - Joint arthroplasty [Unknown]
  - Arthralgia [Unknown]
  - Gallbladder enlargement [Unknown]
  - Pain [Recovered/Resolved]
  - Knee arthroplasty [Unknown]

NARRATIVE: CASE EVENT DATE: 2003
